FAERS Safety Report 4663581-9 (Version None)
Quarter: 2005Q2

REPORT INFORMATION
  Report Type: 
  Country: None (occurrence: None)
  Receive Date: 20050517
  Receipt Date: 20050224
  Transmission Date: 20051028
  Serious: Yes (Other)
  Sender: FDA-Public Use
  Company Number: JP-ROCHE-397932

PATIENT
  Age: 40 Year
  Sex: Female

DRUGS (5)
  1. TAMIFLU [Suspect]
     Route: 048
     Dates: start: 20050221, end: 20050222
  2. ACETAMINOPHEN [Concomitant]
     Indication: DRUG USE FOR UNKNOWN INDICATION
     Dosage: TRADE NAME: COCARL.
     Route: 048
     Dates: start: 20050221, end: 20050222
  3. HUSCODE [Concomitant]
     Route: 048
     Dates: start: 20050221, end: 20050222
  4. CLEMASTINE FUMARATE [Concomitant]
     Route: 048
     Dates: start: 20050221, end: 20050222
  5. ASCOMP [Concomitant]
     Route: 048
     Dates: start: 20050221, end: 20050222

REACTIONS (2)
  - ABDOMINAL PAIN [None]
  - MELAENA [None]
